FAERS Safety Report 13783160 (Version 1)
Quarter: 2017Q3

REPORT INFORMATION
  Report Type: Spontaneous
  Country: US (occurrence: US)
  Receive Date: 20170724
  Receipt Date: 20170724
  Transmission Date: 20171127
  Serious: Yes (Hospitalization)
  Sender: FDA-Public Use
  Company Number: US-LUNDBECK-DKLU2034275

PATIENT
  Age: 71 Year
  Sex: Female

DRUGS (1)
  1. NORTHERA [Suspect]
     Active Substance: DROXIDOPA
     Indication: ORTHOSTATIC HYPOTENSION
     Dosage: THERAPY START DATE: ABOUT 2 YEARS AGO?TITRATION COMPLETE
     Route: 048
     Dates: start: 2015

REACTIONS (10)
  - Diarrhoea [Unknown]
  - Pharyngitis streptococcal [Unknown]
  - Disease progression [Unknown]
  - Bronchitis [Unknown]
  - Gastrooesophageal reflux disease [Unknown]
  - Nausea [Unknown]
  - Drug dose omission [Unknown]
  - Dizziness [Unknown]
  - Amyloidosis [Unknown]
  - Rash [Unknown]

NARRATIVE: CASE EVENT DATE: 20170627
